FAERS Safety Report 6985535-X (Version None)
Quarter: 2010Q3

REPORT INFORMATION
  Report Type: 
  Country: None (occurrence: None)
  Receive Date: 20100915
  Receipt Date: 20100903
  Transmission Date: 20110219
  Serious: Yes (Hospitalization, Congenital Anomaly)
  Sender: FDA-Public Use
  Company Number: GB-PFIZER INC-2010112065

PATIENT
  Sex: Male

DRUGS (7)
  1. SERTRALINE HYDROCHLORIDE [Suspect]
     Route: 064
  2. NORETHISTERONE [Suspect]
     Route: 064
  3. ARIPIPRAZOLE [Suspect]
     Route: 064
  4. DIHYDROCODEINE [Suspect]
     Route: 064
  5. LAMICTAL [Suspect]
     Indication: EPILEPSY
     Dosage: 400 MG, 2X/DAY
     Route: 064
     Dates: start: 20040101
  6. LANSOPRAZOLE [Suspect]
     Route: 064
  7. PROPRANOLOL HYDROCHLORIDE [Suspect]
     Route: 064

REACTIONS (4)
  - ATRIAL SEPTAL DEFECT [None]
  - DRUG EXPOSURE DURING PREGNANCY [None]
  - PREMATURE BABY [None]
  - VENTRICULAR SEPTAL DEFECT [None]
